FAERS Safety Report 13099552 (Version 1)
Quarter: 2017Q1

REPORT INFORMATION
  Report Type: Spontaneous
  Country: US (occurrence: US)
  Receive Date: 20170109
  Receipt Date: 20170109
  Transmission Date: 20170428
  Serious: Yes (Hospitalization, Other)
  Sender: FDA-Public Use
  Company Number: US-JNJFOC-20161225688

PATIENT

DRUGS (2)
  1. ACETAMINOPHEN. [Suspect]
     Active Substance: ACETAMINOPHEN
     Indication: PRODUCT USED FOR UNKNOWN INDICATION
     Route: 065
  2. ACETAMINOPHEN. [Suspect]
     Active Substance: ACETAMINOPHEN
     Route: 065

REACTIONS (6)
  - Accidental overdose [Unknown]
  - Hepatitis toxic [Unknown]
  - Hepatic necrosis [Unknown]
  - Intentional overdose [Unknown]
  - Hepatorenal syndrome [Unknown]
  - Hepatic encephalopathy [Unknown]
